FAERS Safety Report 6409388-3 (Version None)
Quarter: 2009Q4

REPORT INFORMATION
  Report Type: 
  Country: None (occurrence: None)
  Receive Date: 20091019
  Receipt Date: 20091019
  Transmission Date: 20100525
  Serious: Yes (Hospitalization)
  Sender: FDA-Public Use
  Company Number: None

PATIENT
  Sex: Female
  Weight: 90.7 kg

DRUGS (4)
  1. CYTARABINE [Suspect]
     Dosage: 70 MG
  2. DAUNORUBICIN HCL [Suspect]
     Dosage: 90 MG
  3. ETOPOSIDE [Suspect]
     Dosage: 180 MG
  4. MYLOTARG [Suspect]
     Dosage: 5 MG

REACTIONS (11)
  - ALTERED STATE OF CONSCIOUSNESS [None]
  - BACTERIAL INFECTION [None]
  - BLOOD CULTURE POSITIVE [None]
  - BRAIN OEDEMA [None]
  - CARDIAC ARREST [None]
  - CENTRAL NERVOUS SYSTEM LESION [None]
  - CLOSTRIDIAL INFECTION [None]
  - CULTURE URINE POSITIVE [None]
  - HEMIPARESIS [None]
  - PYREXIA [None]
  - SHOCK [None]
